FAERS Safety Report 24389218 (Version 1)
Quarter: 2024Q4

REPORT INFORMATION
  Report Type: Spontaneous
  Country: NL (occurrence: NL)
  Receive Date: 20241003
  Receipt Date: 20241003
  Transmission Date: 20250114
  Serious: Yes (Life-Threatening)
  Sender: JOHNSON AND JOHNSON
  Company Number: None

PATIENT
  Age: 67 Year
  Sex: Female
  Weight: 73 kg

DRUGS (2)
  1. STELARA [Suspect]
     Active Substance: USTEKINUMAB
     Indication: Crohn^s disease
     Dosage: OPLOSSING VOOR INFUUS, 5 MG/ML (MILLIGRAM PER MILLILITER),
     Route: 042
     Dates: start: 20240626, end: 20240805
  2. ELIQUIS [Concomitant]
     Active Substance: APIXABAN
     Dosage: TABLET 2X DAAGS 5 MG

REACTIONS (3)
  - Hyperhidrosis [Recovering/Resolving]
  - Pulmonary embolism [Recovering/Resolving]
  - Thrombosis [Recovering/Resolving]
